FAERS Safety Report 5562500-0 (Version None)
Quarter: 2007Q4

REPORT INFORMATION
  Report Type: 
  Country: None (occurrence: None)
  Receive Date: 20071217
  Receipt Date: 20071213
  Transmission Date: 20080405
  Serious: Yes (Hospitalization)
  Sender: FDA-Public Use
  Company Number: FR-RB-008777-07

PATIENT
  Age: 40 Year
  Sex: Male

DRUGS (1)
  1. SUBUTEX [Suspect]
     Indication: DRUG USE FOR UNKNOWN INDICATION
     Dosage: PRESCRIBED 3 MG DAILY. EXACT DOSE RECEIVED UNKNOWN.
     Route: 065

REACTIONS (2)
  - DIABETES MELLITUS [None]
  - WITHDRAWAL SYNDROME [None]
